FAERS Safety Report 4305866-1 (Version None)
Quarter: 2004Q1

REPORT INFORMATION
  Report Type: 
  Country: None (occurrence: None)
  Receive Date: 20040225
  Receipt Date: 20040213
  Transmission Date: 20041129
  Serious: Yes (Congenital Anomaly)
  Sender: FDA-Public Use
  Company Number: 2004-113007-NL

PATIENT
  Age: 33 Year
  Sex: Female

DRUGS (4)
  1. MIRTAZAPINE [Suspect]
     Indication: DEPRESSION
     Dosage: DF ORAL
     Route: 048
     Dates: start: 20030810, end: 20031010
  2. CLOMIPRAMINE HCL [Suspect]
     Indication: DEPRESSION
     Dosage: 25 MG ORAL
     Route: 048
     Dates: start: 20030810
  3. CLORAZEPATE DIPOTASSIUM [Suspect]
     Indication: PANIC DISORDER
     Dosage: ORAL
     Route: 048
     Dates: start: 20030901, end: 20030916
  4. LORAZEPAM [Suspect]
     Indication: ANXIETY
     Dosage: DF, ORAL
     Route: 048
     Dates: start: 20030810, end: 20030930

REACTIONS (3)
  - COMPLICATIONS OF MATERNAL EXPOSURE TO THERAPEUTIC DRUGS [None]
  - FALLOT'S TETRALOGY [None]
  - MATERNAL DRUGS AFFECTING FOETUS [None]
